FAERS Safety Report 5670797-1 (Version None)
Quarter: 2008Q1

REPORT INFORMATION
  Report Type: 
  Country: None (occurrence: None)
  Receive Date: 20080311
  Receipt Date: 20080311
  Transmission Date: 20080703
  Serious: No
  Sender: FDA-Public Use
  Company Number: None

PATIENT
  Age: 59 Year
  Sex: Male
  Weight: 86.637 kg

DRUGS (2)
  1. VIOXX [Suspect]
     Indication: ARTHRALGIA
     Dosage: FOR PAIN PO
     Route: 048
     Dates: start: 20010101, end: 20040901
  2. VIOXX [Suspect]
     Indication: ARTHRALGIA
     Dosage: FOR PAIN PO
     Route: 048
     Dates: start: 20040901, end: 20040901

REACTIONS (1)
  - GLAUCOMA [None]
